FAERS Safety Report 8135716 (Version 4)
Quarter: 2013Q2

REPORT INFORMATION
  Report Type: Spontaneous
  Country: US (occurrence: US)
  Receive Date: 20110914
  Receipt Date: 20130523
  Transmission Date: 20140414
  Serious: Yes (Life-Threatening, Congenital Anomaly, Other)
  Sender: FDA-Public Use
  Company Number: US-PFIZER INC-2011212563

PATIENT
  Sex: Male

DRUGS (8)
  1. ZOLOFT [Suspect]
     Dosage: 50 MG, 1X/DAY
     Route: 064
     Dates: start: 20020322
  2. PROCHLORPERAZINE [Concomitant]
     Dosage: 10 MG, 3X/DAY
     Route: 064
     Dates: start: 20020108
  3. CLARITIN [Concomitant]
     Dosage: 10 MG, 1X/DAY
     Route: 064
     Dates: start: 20020116
  4. METOCLOPRAMIDE [Concomitant]
     Dosage: 10 MG, 2X/DAY
     Route: 064
     Dates: start: 20020426
  5. ZITHROMAX Z-PACK [Concomitant]
     Dosage: 500 MG (250MG TWO TABLETS AT ONCE)
     Route: 064
     Dates: start: 20020426
  6. DIFLUCAN [Concomitant]
     Dosage: 150 MG, 1X/DAY
     Route: 064
     Dates: start: 20020618
  7. PROPOXYPHENE - N - APAP [Concomitant]
     Dosage: 50-325 MG TAB FOR EVERY 4-6 HOURS
     Route: 064
     Dates: start: 20020813
  8. HYDROCODONE/APAP [Concomitant]
     Dosage: 7.5/500MG, UNK
     Route: 064
     Dates: start: 20020820

REACTIONS (2)
  - Maternal exposure timing unspecified [Unknown]
  - Craniosynostosis [Unknown]
